FAERS Safety Report 9555938 (Version 2)
Quarter: 2013Q4

REPORT INFORMATION
  Report Type: Spontaneous
  Country: AT (occurrence: AT)
  Receive Date: 20130926
  Receipt Date: 20131011
  Transmission Date: 20140711
  Serious: Yes (Other)
  Sender: FDA-Public Use
  Company Number: AT-009507513-1309AUT008598

PATIENT
  Age: 68 Year
  Sex: Male

DRUGS (3)
  1. BOCEPREVIR [Suspect]
     Indication: HEPATITIS C
     Dosage: ORAL
     Dates: start: 20110523, end: 201111
  2. INTERFERON ALFA-2B [Suspect]
     Indication: HEPATITIS C
     Dosage: UNK
     Dates: end: 20120425
  3. RIBAVIRIN [Suspect]
     Indication: HEPATITIS C
     Dosage: UNK
     Route: 048
     Dates: end: 20120425

REACTIONS (5)
  - Myocardial infarction [Unknown]
  - Anaemia [Unknown]
  - Rash [Unknown]
  - Dysgeusia [Unknown]
  - Disease recurrence [Unknown]
